FAERS Safety Report 6279812-8 (Version None)
Quarter: 2009Q3

REPORT INFORMATION
  Report Type: 
  Country: None (occurrence: None)
  Receive Date: 20090723
  Receipt Date: 20090721
  Transmission Date: 20100115
  Serious: No
  Sender: FDA-Public Use
  Company Number: US-B.I. PHARMACEUTICALS,INC./RIDGEFIELD-2009-BP-08501BP

PATIENT
  Sex: Female

DRUGS (3)
  1. SPIRIVA [Suspect]
     Indication: EMPHYSEMA
     Dosage: 18 MCG
     Route: 055
     Dates: start: 20070101
  2. COSOP [Concomitant]
     Indication: GLAUCOMA
  3. COSOP [Concomitant]
     Indication: INTRAOCULAR PRESSURE INCREASED

REACTIONS (1)
  - HERPES ZOSTER [None]
